FAERS Safety Report 11193486 (Version 1)
Quarter: 2015Q2

REPORT INFORMATION
  Report Type: Spontaneous
  Country: DE (occurrence: DE)
  Receive Date: 20150616
  Receipt Date: 20150616
  Transmission Date: 20150821
  Serious: Yes (Hospitalization, Other)
  Sender: FDA-Public Use
  Company Number: DE-PFIZER INC-2015106746

PATIENT
  Age: 55 Year
  Sex: Male
  Weight: 80 kg

DRUGS (1)
  1. INLYTA [Suspect]
     Active Substance: AXITINIB
     Indication: RENAL CELL CARCINOMA
     Dosage: UNK
     Dates: start: 201309

REACTIONS (13)
  - Acute coronary syndrome [Recovered/Resolved]
  - Enteritis [Unknown]
  - Anastomotic leak [Recovered/Resolved with Sequelae]
  - Myocardial infarction [Recovered/Resolved]
  - Diverticulitis [Unknown]
  - Disease progression [Unknown]
  - Pain [Recovered/Resolved]
  - Intestinal perforation [Recovered/Resolved with Sequelae]
  - Pneumonia [Recovered/Resolved]
  - Anaemia postoperative [Unknown]
  - Infected seroma [Unknown]
  - Renal cell carcinoma [Unknown]
  - Retroperitoneal abscess [Recovered/Resolved with Sequelae]

NARRATIVE: CASE EVENT DATE: 201406
